FAERS Safety Report 6955284-2 (Version None)
Quarter: 2010Q3

REPORT INFORMATION
  Report Type: 
  Country: None (occurrence: None)
  Receive Date: 20100830
  Receipt Date: 20100819
  Transmission Date: 20110219
  Serious: Yes (Hospitalization)
  Sender: FDA-Public Use
  Company Number: PHHY2010PL49870

PATIENT
  Sex: Male
  Weight: 38 kg

DRUGS (4)
  1. TRILEPTAL [Suspect]
     Indication: EPILEPSY
     Dosage: 600 MG
     Route: 048
     Dates: start: 20090101
  2. TRILEPTAL [Suspect]
     Dosage: 600 MG
  3. CONVULEX [Concomitant]
     Dosage: 1600/24 HR
     Route: 048
     Dates: start: 20070101
  4. KEPPRA [Concomitant]
     Dosage: 1500 MG PER 24 HOUR
     Dates: start: 20090101

REACTIONS (1)
  - PULMONARY FIBROSIS [None]
